FAERS Safety Report 7135301-X (Version None)
Quarter: 2010Q4

REPORT INFORMATION
  Report Type: 
  Country: None (occurrence: None)
  Receive Date: 20101203
  Receipt Date: 20101126
  Transmission Date: 20110411
  Serious: Yes (Hospitalization)
  Sender: FDA-Public Use
  Company Number: B0676714A

PATIENT
  Sex: Female

DRUGS (25)
  1. LAMICTAL [Suspect]
     Indication: EPILEPSY
     Dosage: 25MG PER DAY
     Route: 048
     Dates: start: 20090811, end: 20090823
  2. LAMICTAL [Suspect]
     Dosage: 50MG PER DAY
     Route: 048
     Dates: start: 20090824, end: 20090914
  3. LAMICTAL [Suspect]
     Route: 048
     Dates: start: 20090915, end: 20091029
  4. LAMICTAL [Suspect]
     Dosage: 100MG PER DAY
     Route: 048
     Dates: start: 20091030, end: 20091125
  5. LAMICTAL [Suspect]
     Route: 048
     Dates: start: 20091126, end: 20091209
  6. LAMICTAL [Suspect]
     Dosage: 150MG PER DAY
     Route: 048
     Dates: start: 20091210, end: 20100120
  7. LAMICTAL [Suspect]
     Route: 048
     Dates: start: 20100121, end: 20100203
  8. LAMICTAL [Suspect]
     Route: 048
     Dates: start: 20100204, end: 20100224
  9. LAMICTAL [Suspect]
     Route: 048
     Dates: start: 20100225, end: 20100328
  10. LAMICTAL [Suspect]
     Route: 048
     Dates: start: 20100329, end: 20100405
  11. LAMICTAL [Suspect]
     Route: 048
     Dates: start: 20100406, end: 20100426
  12. LAMICTAL [Suspect]
     Dosage: 300MG PER DAY
     Route: 048
     Dates: start: 20100427, end: 20100524
  13. LAMICTAL [Suspect]
     Route: 048
     Dates: start: 20100525, end: 20100613
  14. LAMICTAL [Suspect]
     Route: 048
     Dates: start: 20100614, end: 20100627
  15. LAMICTAL [Suspect]
     Route: 048
     Dates: start: 20100628, end: 20100712
  16. LAMICTAL [Suspect]
     Route: 048
     Dates: start: 20100713, end: 20100924
  17. LAMICTAL [Suspect]
     Dosage: 1400MG PER DAY
     Route: 048
     Dates: start: 20100924, end: 20100924
  18. LAMICTAL [Suspect]
     Dosage: 150MG PER DAY
     Route: 048
     Dates: start: 20100930, end: 20101006
  19. LAMICTAL [Suspect]
     Dosage: 225MG PER DAY
     Route: 048
     Dates: start: 20101007, end: 20101020
  20. LAMICTAL [Suspect]
     Route: 048
     Dates: start: 20101021, end: 20101103
  21. LAMICTAL [Suspect]
     Dosage: 300MG PER DAY
     Route: 048
     Dates: start: 20101104, end: 20101126
  22. TEGRETOL [Concomitant]
     Dosage: 100MG PER DAY
     Route: 048
     Dates: start: 20100927, end: 20100929
  23. PRIMIDONE [Concomitant]
     Indication: EPILEPSY
     Dosage: 125MG PER DAY
     Route: 048
  24. HYDANTOL [Concomitant]
     Indication: EPILEPSY
     Dosage: 210MG PER DAY
     Route: 048
  25. CELOOP [Concomitant]
     Indication: GASTRITIS
     Dosage: 150MG PER DAY
     Route: 048

REACTIONS (4)
  - DEPRESSED LEVEL OF CONSCIOUSNESS [None]
  - DRUG TOXICITY [None]
  - NAUSEA [None]
  - OVERDOSE [None]
